FAERS Safety Report 7990049-4 (Version None)
Quarter: 2011Q4

REPORT INFORMATION
  Report Type: 
  Country: None (occurrence: None)
  Receive Date: 20111219
  Receipt Date: 20110401
  Transmission Date: 20120403
  Serious: No
  Sender: FDA-Public Use
  Company Number: US-ASTRAZENECA-2011SE18648

PATIENT
  Age: 59 Year
  Sex: Female
  Weight: 99.8 kg

DRUGS (3)
  1. CRESTOR [Suspect]
     Indication: BLOOD CHOLESTEROL ABNORMAL
     Route: 048
  2. THYROXIN [Concomitant]
  3. CRESTOR [Suspect]
     Route: 048
     Dates: start: 20110112

REACTIONS (2)
  - ONYCHOCLASIS [None]
  - ARTHRALGIA [None]
